FAERS Safety Report 6683564-7 (Version None)
Quarter: 2010Q2

REPORT INFORMATION
  Report Type: 
  Country: None (occurrence: None)
  Receive Date: 20100413
  Receipt Date: 20100329
  Transmission Date: 20101027
  Serious: Yes (Other)
  Sender: FDA-Public Use
  Company Number: AUR-APL-2009-01506

PATIENT
  Age: 76 Year
  Sex: Male

DRUGS (7)
  1. SERTRALINE HCL [Suspect]
     Indication: DEPRESSED MOOD
     Dosage: 50MG - DAILY - ORAL
     Route: 048
  2. MIRAPEX [Suspect]
     Indication: PARKINSON'S DISEASE
     Dosage: 1.25MG-3 X DAILY- ORAL
     Route: 048
  3. FUROSEMUDE [Concomitant]
  4. MADOPAR (BENSERAZIDE HCL) [Concomitant]
  5. QUININE [Concomitant]
  6. SPIRONOLACETON [Concomitant]
  7. INFUMORPH [Concomitant]

REACTIONS (1)
  - VITREOUS FLOATERS [None]
